FAERS Safety Report 17563240 (Version 3)
Quarter: 2021Q4

REPORT INFORMATION
  Report Type: Spontaneous
  Country: JP (occurrence: JP)
  Receive Date: 20200319
  Receipt Date: 20211015
  Transmission Date: 20220303
  Serious: Yes (Hospitalization, Other)
  Sender: FDA-Public Use
  Company Number: JP-NOVOPROD-718696

PATIENT
  Age: 39 Year
  Sex: Female
  Weight: 70.6 kg

DRUGS (2)
  1. LEVEMIR [Suspect]
     Active Substance: INSULIN DETEMIR
     Dosage: 5 IU, QD (5IU/DAY, BEFORE SUPPER)
     Route: 058
  2. LEVEMIR [Suspect]
     Active Substance: INSULIN DETEMIR
     Indication: Gestational diabetes
     Dosage: 3 IU, QD (3IU/DAY, BEFORE SUPPER)
     Route: 058

REACTIONS (5)
  - Fulminant type 1 diabetes mellitus [Recovered/Resolved]
  - Foetal death [Unknown]
  - Diabetic ketoacidosis [Recovered/Resolved]
  - Weight decreased [Unknown]
  - Maternal exposure during pregnancy [Recovered/Resolved]
